FAERS Safety Report 23762127 (Version 2)
Quarter: 2024Q2

REPORT INFORMATION
  Report Type: Report from Study
  Country: IT (occurrence: IT)
  Receive Date: 20240419
  Receipt Date: 20240425
  Transmission Date: 20240715
  Serious: Yes (Other)
  Sender: FDA-Public Use
  Company Number: None

PATIENT
  Age: 81 Year
  Sex: Male
  Weight: 78 kg

DRUGS (8)
  1. CARBOPLATIN [Suspect]
     Active Substance: CARBOPLATIN
     Indication: Bladder transitional cell carcinoma
     Dosage: 121 MG
     Route: 042
     Dates: start: 20240325, end: 20240325
  2. GEMCITABINE [Suspect]
     Active Substance: GEMCITABINE
     Indication: Bladder transitional cell carcinoma
     Dosage: 1169 MG
     Route: 042
     Dates: start: 20240325, end: 20240325
  3. EZEVAST [Concomitant]
     Dosage: UNK
  4. NEBIVOLOL [Concomitant]
     Active Substance: NEBIVOLOL
     Dosage: UNK
  5. DOXAZOSIN [Concomitant]
     Active Substance: DOXAZOSIN MESYLATE
     Dosage: UNK
  6. REPAGLINIDE [Concomitant]
     Active Substance: REPAGLINIDE
     Dosage: UNK
  7. OMEPRAZOLE [Concomitant]
     Active Substance: OMEPRAZOLE
     Dosage: UNK
  8. LINAGLIPTIN [Concomitant]
     Active Substance: LINAGLIPTIN
     Dosage: UNK

REACTIONS (3)
  - Azotaemia [Unknown]
  - Constipation [Recovering/Resolving]
  - Haemoglobin decreased [Unknown]

NARRATIVE: CASE EVENT DATE: 20240328
